FAERS Safety Report 14233704 (Version 1)
Quarter: 2017Q4

REPORT INFORMATION
  Report Type: Spontaneous
  Country: IL (occurrence: IL)
  Receive Date: 20171129
  Receipt Date: 20171129
  Transmission Date: 20180321
  Serious: Yes (Hospitalization)
  Sender: FDA-Public Use
  Company Number: IL-CELGENEUS-ISR-20170906545

PATIENT
  Age: 63 Year
  Sex: Male
  Weight: 68 kg

DRUGS (6)
  1. DEXAMETHASONE. [Suspect]
     Active Substance: DEXAMETHASONE
     Indication: PLASMA CELL MYELOMA
     Route: 048
     Dates: start: 20130411, end: 20170918
  2. MLN9708 [Concomitant]
     Active Substance: IXAZOMIB
     Route: 048
     Dates: start: 20170918
  3. REVLIMID [Suspect]
     Active Substance: LENALIDOMIDE
     Route: 048
     Dates: start: 20170918
  4. DEXAMETHASONE. [Suspect]
     Active Substance: DEXAMETHASONE
     Route: 048
     Dates: start: 20170918
  5. REVLIMID [Suspect]
     Active Substance: LENALIDOMIDE
     Indication: PLASMA CELL MYELOMA
     Route: 048
     Dates: start: 20130411, end: 20171031
  6. MLN9708 [Concomitant]
     Active Substance: IXAZOMIB
     Indication: PLASMA CELL MYELOMA
     Route: 048
     Dates: start: 20130411, end: 20171026

REACTIONS (2)
  - Acute coronary syndrome [Recovered/Resolved]
  - Stress echocardiogram abnormal [Recovered/Resolved]

NARRATIVE: CASE EVENT DATE: 20170918
